FAERS Safety Report 8180519-0 (Version None)
Quarter: 2012Q1

REPORT INFORMATION
  Report Type: 
  Country: None (occurrence: None)
  Receive Date: 20120302
  Receipt Date: 20120229
  Transmission Date: 20120608
  Serious: Yes (Other)
  Sender: FDA-Public Use
  Company Number: US-ROCHE-1044450

PATIENT
  Sex: Female

DRUGS (2)
  1. FOSAMAX [Suspect]
     Indication: OSTEOPOROSIS
     Dates: start: 19970101, end: 20050901
  2. BONIVA [Suspect]
     Indication: OSTEOPOROSIS
     Dates: start: 20050101, end: 20100301

REACTIONS (1)
  - INJURY [None]
